FAERS Safety Report 11184419 (Version 2)
Quarter: 2015Q2

REPORT INFORMATION
  Report Type: Spontaneous
  Country: US (occurrence: US)
  Receive Date: 20150612
  Receipt Date: 20150616
  Transmission Date: 20150821
  Serious: No
  Sender: FDA-Public Use
  Company Number: US-ASTRAZENECA-2015SE54329

PATIENT
  Sex: Female
  Weight: 40.8 kg

DRUGS (2)
  1. CRESTOR [Suspect]
     Active Substance: ROSUVASTATIN CALCIUM
     Route: 048
     Dates: start: 2005
  2. GLYBURIDE. [Concomitant]
     Active Substance: GLYBURIDE

REACTIONS (10)
  - Body mass index decreased [Unknown]
  - Feeling abnormal [Unknown]
  - Muscle spasms [Unknown]
  - Diabetes mellitus [Unknown]
  - Asthenia [Unknown]
  - General physical health deterioration [Unknown]
  - Weight decreased [Unknown]
  - Intentional product misuse [Unknown]
  - Muscular weakness [Unknown]
  - Blood glucose increased [Unknown]

NARRATIVE: CASE EVENT DATE: 2012
